FAERS Safety Report 4887991-X (Version None)
Quarter: 2006Q1

REPORT INFORMATION
  Report Type: 
  Country: None (occurrence: None)
  Receive Date: 20060123
  Receipt Date: 20050928
  Transmission Date: 20060701
  Serious: Yes (Hospitalization, Disabling)
  Sender: FDA-Public Use
  Company Number: US-MERCK-0509USA04810

PATIENT
  Age: 51 Year
  Sex: Male
  Weight: 116 kg

DRUGS (17)
  1. VIOXX [Suspect]
     Indication: MUSCULOSKELETAL PAIN
     Route: 048
     Dates: start: 20000728, end: 20020719
  2. VIOXX [Suspect]
     Route: 048
     Dates: start: 20020901, end: 20030703
  3. VIOXX [Suspect]
     Route: 048
     Dates: start: 20031101
  4. VIOXX [Suspect]
     Indication: OSTEOARTHRITIS
     Route: 048
     Dates: start: 20000728, end: 20020719
  5. VIOXX [Suspect]
     Route: 048
     Dates: start: 20020901, end: 20030703
  6. VIOXX [Suspect]
     Route: 048
     Dates: start: 20031101
  7. TOPAMAX [Concomitant]
     Route: 065
  8. LIPITOR [Concomitant]
     Indication: BLOOD CHOLESTEROL INCREASED
     Route: 065
     Dates: start: 20030601
  9. LIPITOR [Concomitant]
     Indication: BLOOD TRIGLYCERIDES INCREASED
     Route: 065
     Dates: start: 20030601
  10. NITROQUICK [Concomitant]
     Route: 065
  11. ELAVIL [Concomitant]
     Route: 065
  12. ZOLOFT [Concomitant]
     Indication: DEPRESSION
     Route: 065
  13. AMITRIPTYLIN [Concomitant]
     Route: 065
  14. TYLENOL (CAPLET) [Concomitant]
     Route: 065
     Dates: start: 20000801
  15. NAPROSYN [Concomitant]
     Route: 065
     Dates: start: 20020801
  16. LASIX [Concomitant]
     Indication: OEDEMA PERIPHERAL
     Route: 065
     Dates: start: 20030101
  17. DARVOCET-N 50 [Concomitant]
     Route: 065

REACTIONS (12)
  - ACUTE MYOCARDIAL INFARCTION [None]
  - ARTHRALGIA [None]
  - CARDIAC FAILURE CONGESTIVE [None]
  - CHEST PAIN [None]
  - CORONARY ARTERY DISEASE [None]
  - DYSPNOEA [None]
  - PHLEBITIS [None]
  - PLANTAR FASCIITIS [None]
  - RASH [None]
  - SINUS CONGESTION [None]
  - SKIN PAPILLOMA [None]
  - VIRAL UPPER RESPIRATORY TRACT INFECTION [None]
